FAERS Safety Report 23436643 (Version 1)
Quarter: 2024Q1

REPORT INFORMATION
  Report Type: Spontaneous
  Country: GB (occurrence: GB)
  Receive Date: 20240124
  Receipt Date: 20240124
  Transmission Date: 20240409
  Serious: Yes (Hospitalization)
  Sender: FDA-Public Use
  Company Number: GB-TAKEDA-2023TUS002895

PATIENT

DRUGS (1)
  1. ICATIBANT [Suspect]
     Active Substance: ICATIBANT ACETATE
     Indication: Product used for unknown indication
     Dosage: UNK, (30MG/3ML PRN) (NEEDLES,PRE-FILLED SYRINGE)
     Route: 050

REACTIONS (2)
  - Hospitalisation [Unknown]
  - COVID-19 [Unknown]
